FAERS Safety Report 20399454 (Version 2)
Quarter: 2022Q1

REPORT INFORMATION
  Report Type: Spontaneous
  Country: US (occurrence: US)
  Receive Date: 20220131
  Receipt Date: 20220201
  Transmission Date: 20220423
  Serious: No
  Sender: FDA-Public Use
  Company Number: US-ABBVIE-21K-163-4000687-00

PATIENT
  Age: 14 Year
  Sex: Female
  Weight: 66.738 kg

DRUGS (2)
  1. HUMIRA [Suspect]
     Active Substance: ADALIMUMAB
     Indication: Juvenile idiopathic arthritis
     Route: 058
     Dates: start: 20210224
  2. MELOXICAM [Concomitant]
     Active Substance: MELOXICAM
     Indication: Juvenile idiopathic arthritis

REACTIONS (2)
  - Injection site haemorrhage [Recovered/Resolved]
  - Device issue [Recovered/Resolved]

NARRATIVE: CASE EVENT DATE: 20210714
